FAERS Safety Report 4863975-2 (Version None)
Quarter: 2005Q4

REPORT INFORMATION
  Report Type: 
  Country: None (occurrence: None)
  Receive Date: 20051222
  Receipt Date: 20051212
  Transmission Date: 20060501
  Serious: Yes (Hospitalization, Other)
  Sender: FDA-Public Use
  Company Number: GB-JNJFOC-20051202539

PATIENT
  Sex: Male
  Weight: 68 kg

DRUGS (12)
  1. REMICADE [Suspect]
     Indication: RHEUMATOID ARTHRITIS
     Route: 042
  2. PREDNISOLONE [Concomitant]
     Route: 065
  3. ADCAL [Concomitant]
     Route: 065
  4. ASPIRIN [Concomitant]
     Route: 065
  5. ATORVASTATIN [Concomitant]
     Route: 065
  6. CLOPIDOGREL [Concomitant]
     Route: 065
  7. ETIDRONATE DISODIUM [Concomitant]
     Route: 065
  8. INSULIN [Concomitant]
     Route: 065
  9. LANSOPRAZOLE [Concomitant]
     Route: 065
  10. MESALAMINE [Concomitant]
     Route: 065
  11. PARACETAMOL [Concomitant]
     Route: 065
  12. RAMIPRIL [Concomitant]
     Route: 065

REACTIONS (1)
  - CAROTID ARTERY DISEASE [None]
